FAERS Safety Report 10871895 (Version 1)
Quarter: 2015Q1

REPORT INFORMATION
  Report Type: Spontaneous
  Country: US (occurrence: None)
  Receive Date: 20150223
  Receipt Date: 20150223
  Transmission Date: 20150721
  Serious: Yes (Disabling, Other)
  Sender: FDA-Public Use
  Company Number: None

PATIENT
  Age: 44 Year
  Sex: Female
  Weight: 94.35 kg

DRUGS (3)
  1. DIFFERIN [Suspect]
     Active Substance: ADAPALENE
     Indication: ACNE
     Dosage: TOPICAL ONCE, TOPICAL FACE
     Route: 061
     Dates: start: 20150203, end: 20150218
  2. FISH OIL [Concomitant]
     Active Substance: FISH OIL
  3. MULTI VITAMIN [Concomitant]
     Active Substance: VITAMINS

REACTIONS (1)
  - Menometrorrhagia [None]

NARRATIVE: CASE EVENT DATE: 20150216
